FAERS Safety Report 14533572 (Version 1)
Quarter: 2018Q1

REPORT INFORMATION
  Report Type: Spontaneous
  Country: TR (occurrence: TR)
  Receive Date: 20180215
  Receipt Date: 20180215
  Transmission Date: 20180509
  Serious: Yes (Other)
  Sender: FDA-Public Use
  Company Number: TR-009507513-1802TUR005935

PATIENT
  Age: 55 Year
  Sex: Female
  Weight: 59 kg

DRUGS (5)
  1. CALCIMAX D3 [Concomitant]
  2. NASONEX [Suspect]
     Active Substance: MOMETASONE FUROATE
     Indication: LOWER RESPIRATORY TRACT INFECTION
  3. NASONEX [Suspect]
     Active Substance: MOMETASONE FUROATE
     Indication: UPPER-AIRWAY COUGH SYNDROME
     Dosage: 18 G/140 DOSE; 2X1
     Route: 045
     Dates: start: 20180125
  4. CIPROXIN (CIPROFLOXACIN HYDROCHLORIDE) (FILM-COATED TABLET) (CIPROFLOXACIN HYDROCHLORIDE) [Suspect]
     Active Substance: CIPROFLOXACIN
     Indication: LOWER RESPIRATORY TRACT INFECTION
     Dosage: 500X2
     Route: 048
     Dates: start: 20180125
  5. LUSTRAL [Suspect]
     Active Substance: SERTRALINE HYDROCHLORIDE
     Indication: FIBROMYALGIA
     Dosage: 25 MG, UNK
     Route: 048

REACTIONS (3)
  - Myalgia [Not Recovered/Not Resolved]
  - Bone pain [Not Recovered/Not Resolved]
  - Arthralgia [Not Recovered/Not Resolved]

NARRATIVE: CASE EVENT DATE: 20180128
